FAERS Safety Report 20839567 (Version 1)
Quarter: 2022Q2

REPORT INFORMATION
  Report Type: Spontaneous
  Country: DE (occurrence: DE)
  Receive Date: 20220517
  Receipt Date: 20220517
  Transmission Date: 20220721
  Serious: Yes (Other)
  Sender: FDA-Public Use
  Company Number: DE-002147023-NVSC2022DE096186

PATIENT
  Sex: Male

DRUGS (1)
  1. BACLOFEN [Suspect]
     Active Substance: BACLOFEN
     Indication: Product used for unknown indication
     Dosage: UNK
     Route: 065

REACTIONS (11)
  - Condition aggravated [Unknown]
  - Hyperventilation [Unknown]
  - Muscle spasms [Unknown]
  - Circulatory collapse [Unknown]
  - Asphyxia [Unknown]
  - Respiratory disorder [Unknown]
  - Musculoskeletal stiffness [Unknown]
  - Panic attack [Unknown]
  - Dyspnoea [Unknown]
  - Mental disorder [Unknown]
  - Drug ineffective [Unknown]
